FAERS Safety Report 10088919 (Version 1)
Quarter: 2014Q2

REPORT INFORMATION
  Report Type: Spontaneous
  Country: US (occurrence: US)
  Receive Date: 20140421
  Receipt Date: 20140421
  Transmission Date: 20141212
  Serious: Yes (Hospitalization)
  Sender: FDA-Public Use
  Company Number: US-DRREDDYS-USA/USA/14/0038199

PATIENT
  Age: 53 Year
  Sex: Male

DRUGS (4)
  1. QUETIAPINE FUMARATE TABLETS [Suspect]
     Indication: PRODUCT USED FOR UNKNOWN INDICATION
     Route: 065
  2. QUETIAPINE FUMARATE TABLETS [Suspect]
     Route: 065
  3. QUETIAPINE FUMARATE TABLETS [Suspect]
     Route: 065
  4. METFORMIN [Concomitant]
     Indication: TYPE 2 DIABETES MELLITUS
     Route: 065

REACTIONS (2)
  - Ketoacidosis [Recovered/Resolved]
  - Blood glucose increased [Unknown]
